FAERS Safety Report 13513135 (Version 3)
Quarter: 2017Q2

REPORT INFORMATION
  Report Type: Spontaneous
  Country: US (occurrence: US)
  Receive Date: 20170504
  Receipt Date: 20170607
  Transmission Date: 20170830
  Serious: Yes (Life-Threatening, Hospitalization, Other)
  Sender: FDA-Public Use
  Company Number: US-SA-2017SA072813

PATIENT
  Age: 63 Year
  Sex: Female

DRUGS (4)
  1. FEXOFENADINE HYDROCHLORIDE/PSEUDOEPHEDRINE HYDROCHLORIDE [Suspect]
     Active Substance: FEXOFENADINE HYDROCHLORIDE\PSEUDOEPHEDRINE HYDROCHLORIDE
     Indication: RHINITIS ALLERGIC
     Route: 065
  2. METOPROLOL SALT NOT SPECIFIED [Interacting]
     Active Substance: METOPROLOL
     Indication: ATRIAL FIBRILLATION
     Route: 042
  3. METOPROLOL SALT NOT SPECIFIED [Interacting]
     Active Substance: METOPROLOL
     Indication: ATRIAL FIBRILLATION
     Route: 048
  4. FEXOFENADINE HYDROCHLORIDE/PSEUDOEPHEDRINE HYDROCHLORIDE [Interacting]
     Active Substance: FEXOFENADINE HYDROCHLORIDE\PSEUDOEPHEDRINE HYDROCHLORIDE
     Indication: NASAL DECONGESTION THERAPY
     Route: 065

REACTIONS (15)
  - Drug interaction [Unknown]
  - Arteriospasm coronary [Unknown]
  - Bradycardia [Unknown]
  - Palpitations [Unknown]
  - Acute myocardial infarction [Unknown]
  - Chest pain [Unknown]
  - Ejection fraction decreased [Unknown]
  - Electrocardiogram ST segment elevation [Unknown]
  - Troponin T increased [Unknown]
  - Hypotension [Unknown]
  - Electrocardiogram ST segment depression [Unknown]
  - Arteriogram coronary abnormal [Unknown]
  - Ventricular hypokinesia [Unknown]
  - Atrial fibrillation [Unknown]
  - Dyspnoea [Unknown]
